FAERS Safety Report 21341925 (Version 1)
Quarter: 2022Q3

REPORT INFORMATION
  Report Type: Spontaneous
  Country: FR (occurrence: FR)
  Receive Date: 20220916
  Receipt Date: 20220916
  Transmission Date: 20221026
  Serious: Yes (Other)
  Sender: FDA-Public Use
  Company Number: None

PATIENT
  Age: 31 Year
  Sex: Male

DRUGS (3)
  1. LYRICA [Suspect]
     Active Substance: PREGABALIN
     Route: 048
  2. COCAINE [Suspect]
     Active Substance: COCAINE
     Route: 042
     Dates: start: 20220829
  3. HEROIN [Suspect]
     Active Substance: DIAMORPHINE
     Route: 042
     Dates: start: 20220829

REACTIONS (3)
  - Depressed level of consciousness [Recovered/Resolved]
  - Substance abuse [Not Recovered/Not Resolved]
  - Hyperhidrosis [Recovered/Resolved]

NARRATIVE: CASE EVENT DATE: 20220829
